FAERS Safety Report 6401802-2 (Version None)
Quarter: 2009Q4

REPORT INFORMATION
  Report Type: 
  Country: None (occurrence: None)
  Receive Date: 20091015
  Receipt Date: 20091006
  Transmission Date: 20100525
  Serious: Yes (Hospitalization)
  Sender: FDA-Public Use
  Company Number: GB-ASTRAZENECA-2009SE18383

PATIENT
  Age: 22 Year
  Sex: Female

DRUGS (4)
  1. MEROPENEM [Suspect]
     Indication: INFECTION
  2. CASPOFUNGIN ACETATE [Suspect]
     Indication: INFECTION
     Route: 042
     Dates: start: 20090701
  3. OSELTAMIVIR [Suspect]
     Indication: INFLUENZA
     Dates: start: 20090705
  4. TEICOPLANIN [Suspect]

REACTIONS (2)
  - DRUG INEFFECTIVE [None]
  - INFLUENZA [None]
